FAERS Safety Report 4373298-6 (Version None)
Quarter: 2004Q2

REPORT INFORMATION
  Report Type: 
  Country: None (occurrence: None)
  Receive Date: 20040603
  Receipt Date: 20040526
  Transmission Date: 20050107
  Serious: Yes (Hospitalization)
  Sender: FDA-Public Use
  Company Number: 2004035298

PATIENT
  Age: 60 Year
  Sex: Female
  Weight: 93.441 kg

DRUGS (12)
  1. ZITHROMAX [Suspect]
     Indication: ILL-DEFINED DISORDER
     Dosage: ORAL
     Route: 048
     Dates: start: 20030101
  2. CELECOXIB (CELECOXIB) [Concomitant]
  3. FEXOFENADINE HYDROCHLORIDE [Concomitant]
  4. ALL OTHER THERAPEUTIC PRODUCTS (ALL OTHER THERAPEUTIC PRODUCTS) [Concomitant]
  5. LANSOPRAZOLE [Concomitant]
  6. ATORVASTATIN (ATORVASTATIN) [Concomitant]
  7. METOPROLOL TARTRATE [Concomitant]
  8. ISOSORBIDE MONONITRATE [Concomitant]
  9. METFORMIN HCL [Concomitant]
  10. ALL OTHER THERAPEUTIC PRODUCTS (ALL OTHER THERAPEUTIC PRODUCTS) [Concomitant]
  11. CENTRUM SILVER (ASCORBIC ACID, CALCIUM, MINERALS NOS, RETINOL, TOCOPHE [Concomitant]
  12. TOCOPHEROL CONCENTRATE CAP [Concomitant]

REACTIONS (3)
  - DRUG INEFFECTIVE [None]
  - PNEUMONIA [None]
  - URTICARIA [None]
